FAERS Safety Report 19663854 (Version 2)
Quarter: 2021Q3

REPORT INFORMATION
  Report Type: Spontaneous
  Country: US (occurrence: US)
  Receive Date: 20210805
  Receipt Date: 20210813
  Transmission Date: 20211014
  Serious: Yes (Life-Threatening, Hospitalization)
  Sender: FDA-Public Use
  Company Number: US-TEVA-2021-US-1938298

PATIENT
  Age: 64 Year
  Sex: Female

DRUGS (6)
  1. AZATHIOPRINE. [Suspect]
     Active Substance: AZATHIOPRINE
     Indication: SYSTEMIC LUPUS ERYTHEMATOSUS
     Route: 065
  2. HYDROCORTISONE. [Suspect]
     Active Substance: HYDROCORTISONE
     Indication: HYPERGAMMAGLOBULINAEMIA
  3. AZATHIOPRINE. [Suspect]
     Active Substance: AZATHIOPRINE
     Indication: HYPERGAMMAGLOBULINAEMIA
  4. PREDNISONE. [Suspect]
     Active Substance: PREDNISONE
     Indication: HYPERGAMMAGLOBULINAEMIA
  5. HYDROCORTISONE. [Suspect]
     Active Substance: HYDROCORTISONE
     Indication: SYSTEMIC LUPUS ERYTHEMATOSUS
     Route: 065
  6. PREDNISONE. [Suspect]
     Active Substance: PREDNISONE
     Indication: SYSTEMIC LUPUS ERYTHEMATOSUS
     Dosage: FOR 6 DAYS
     Route: 065

REACTIONS (4)
  - Pleural effusion [Recovering/Resolving]
  - Respiratory distress [Recovering/Resolving]
  - Legionella infection [Recovering/Resolving]
  - Pulmonary cavitation [Recovering/Resolving]
